FAERS Safety Report 4483930-4 (Version None)
Quarter: 2004Q4

REPORT INFORMATION
  Report Type: 
  Country: None (occurrence: None)
  Receive Date: 20041022
  Receipt Date: 20041022
  Transmission Date: 20050328
  Serious: Yes (Life-Threatening, Hospitalization, Disabling)
  Sender: FDA-Public Use
  Company Number: None

PATIENT
  Age: 59 Year
  Sex: Male
  Weight: 90.7194 kg

DRUGS (1)
  1. VIOXX [Suspect]
     Indication: ARTHRALGIA
     Dosage: 50 MG 1 TABLET DAILY ORAL
     Route: 048
     Dates: start: 20020716, end: 20040714

REACTIONS (3)
  - ARTERIAL OCCLUSIVE DISEASE [None]
  - HAEMORRHAGE [None]
  - MYOCARDIAL INFARCTION [None]
